FAERS Safety Report 9107497 (Version 5)
Quarter: 2013Q2

REPORT INFORMATION
  Report Type: Spontaneous
  Country: US (occurrence: US)
  Receive Date: 20130221
  Receipt Date: 20130401
  Transmission Date: 20140414
  Serious: Yes (Death)
  Sender: FDA-Public Use
  Company Number: PHEH2013US004292

PATIENT
  Age: 84 Year
  Sex: Male

DRUGS (17)
  1. RECLAST [Suspect]
     Dosage: UNK UKN, UNK
     Route: 042
  2. FERROUS GLUCONATE [Concomitant]
  3. WARFARIN [Concomitant]
  4. AVELOX [Concomitant]
  5. CRESTOR [Concomitant]
  6. METAMUCIL [Concomitant]
  7. LIDOCAINE [Concomitant]
  8. NASONEX [Concomitant]
  9. PREDNISONE [Concomitant]
  10. OSTEO BI-FLEX [Concomitant]
  11. CENTRUM SILVER [Concomitant]
  12. VITAMIN D3 [Concomitant]
  13. PANTOPRAZOLE [Concomitant]
  14. IMIQUIMOD [Concomitant]
  15. TRAMADOL [Concomitant]
  16. SUPARTZ [Concomitant]
  17. ATROVENT [Concomitant]

REACTIONS (1)
  - Death [Fatal]
